FAERS Safety Report 9641599 (Version 1)
Quarter: 2013Q4

REPORT INFORMATION
  Report Type: Spontaneous
  Country: US (occurrence: US)
  Receive Date: 20131023
  Receipt Date: 20131023
  Transmission Date: 20140711
  Serious: Yes (Other)
  Sender: FDA-Public Use
  Company Number: US-GLAXOSMITHKLINE-A1046326A

PATIENT
  Sex: Female

DRUGS (9)
  1. ADVAIR [Suspect]
     Indication: ASTHMA
     Dosage: 1PUFF UNKNOWN
     Route: 055
  2. ZYRTEC [Concomitant]
  3. ATENOLOL [Concomitant]
  4. AMLODIPINE [Concomitant]
  5. BENAZAPRIL [Concomitant]
  6. ATORVASTATIN [Concomitant]
  7. OMEPRAZOLE [Concomitant]
  8. IPRATROPIUM SALBUTAMOL [Concomitant]
     Route: 055
  9. PSORIASIS OINTMENT [Concomitant]
     Indication: PSORIASIS
     Route: 061

REACTIONS (3)
  - Pneumonia [Recovering/Resolving]
  - Off label use [Recovering/Resolving]
  - Drug ineffective [Recovering/Resolving]
